FAERS Safety Report 7476064-8 (Version None)
Quarter: 2011Q2

REPORT INFORMATION
  Report Type: 
  Country: None (occurrence: None)
  Receive Date: 20110512
  Receipt Date: 20110509
  Transmission Date: 20111010
  Serious: Yes (Hospitalization, Other)
  Sender: FDA-Public Use
  Company Number: JP-PFIZER INC-2011082606

PATIENT
  Age: 79 Year
  Sex: Male

DRUGS (5)
  1. LYRICA [Suspect]
     Indication: POST HERPETIC NEURALGIA
     Dosage: 75 MG, 2X/DAY
     Route: 048
     Dates: start: 20110401, end: 20110407
  2. ETIZOLAM [Suspect]
     Indication: POST HERPETIC NEURALGIA
     Dosage: 0.5 MG, 1X/DAY
     Route: 048
     Dates: start: 20110401, end: 20110407
  3. LOXONIN [Suspect]
     Indication: POST HERPETIC NEURALGIA
     Dosage: 60 MG, 3X/DAY
     Route: 048
     Dates: start: 20110401, end: 20110407
  4. CARBAMAZEPINE [Suspect]
     Indication: POST HERPETIC NEURALGIA
     Dosage: 100 MG, 2X/DAY
     Route: 048
     Dates: start: 20110401, end: 20110407
  5. FAROM [Suspect]
     Indication: INFECTION PROPHYLAXIS
     Dosage: 200 MG, 3X/DAY
     Route: 048
     Dates: start: 20110401, end: 20110407

REACTIONS (1)
  - INTERSTITIAL LUNG DISEASE [None]
